FAERS Safety Report 8188737-2 (Version None)
Quarter: 2012Q1

REPORT INFORMATION
  Report Type: 
  Country: None (occurrence: None)
  Receive Date: 20120306
  Receipt Date: 20120207
  Transmission Date: 20120608
  Serious: Yes (Other)
  Sender: FDA-Public Use
  Company Number: CHPA2012CA002827

PATIENT
  Age: 52 Year
  Sex: Female

DRUGS (1)
  1. OTRIVIN COLD + ALLERGY MEASURED DOSE PUMP [Suspect]
     Indication: NASAL CONGESTION
     Dosage: ONE TO SIX TIMES PER DAY
     Route: 045

REACTIONS (4)
  - OVERDOSE [None]
  - REBOUND EFFECT [None]
  - DRUG DEPENDENCE [None]
  - INCORRECT DRUG ADMINISTRATION DURATION [None]
